FAERS Safety Report 18730582 (Version 2)
Quarter: 2021Q1

REPORT INFORMATION
  Report Type: Spontaneous
  Country: GB (occurrence: GB)
  Receive Date: 20210112
  Receipt Date: 20210121
  Transmission Date: 20210419
  Serious: Yes (Death)
  Sender: FDA-Public Use
  Company Number: GB-PFIZER INC-2021016739

PATIENT
  Age: 90 Year
  Sex: Male

DRUGS (1)
  1. VYNDAQEL [Suspect]
     Active Substance: TAFAMIDIS MEGLUMINE
     Dosage: 61 MG

REACTIONS (1)
  - Death [Fatal]

NARRATIVE: CASE EVENT DATE: 20200901
